FAERS Safety Report 6423897-2 (Version None)
Quarter: 2009Q4

REPORT INFORMATION
  Report Type: 
  Country: None (occurrence: None)
  Receive Date: 20091102
  Receipt Date: 20091019
  Transmission Date: 20100525
  Serious: Yes (Other)
  Sender: FDA-Public Use
  Company Number: PHHY2009FR40336

PATIENT
  Sex: Female
  Weight: 41 kg

DRUGS (3)
  1. EXELON [Suspect]
     Indication: COGNITIVE DISORDER
     Dosage: 3 MG, BID
     Dates: start: 20090507, end: 20090727
  2. KARDEGIC [Concomitant]
     Dosage: 75 MG, QD
  3. TRANSIPEG [Concomitant]
     Dosage: 1 DF DAILY

REACTIONS (3)
  - AFFECTIVE DISORDER [None]
  - DIARRHOEA [None]
  - DISORIENTATION [None]
